FAERS Safety Report 24707720 (Version 1)
Quarter: 2024Q4

REPORT INFORMATION
  Report Type: Spontaneous
  Country: PT (occurrence: PT)
  Receive Date: 20241206
  Receipt Date: 20241206
  Transmission Date: 20250115
  Serious: Yes (Life-Threatening, Hospitalization, Disabling, Other)
  Sender: BAUSCH AND LOMB
  Company Number: None

PATIENT
  Age: 31 Year
  Sex: Female

DRUGS (4)
  1. CLINDAMYCIN [Suspect]
     Active Substance: CLINDAMYCIN
     Indication: Antibiotic therapy
     Route: 065
  2. GENTAMICIN [Suspect]
     Active Substance: GENTAMICIN
     Indication: Antibiotic therapy
     Route: 065
  3. TRANEXAMIC ACID [Suspect]
     Active Substance: TRANEXAMIC ACID
     Indication: Haemorrhage
     Route: 065
  4. AMPICILLIN [Concomitant]
     Active Substance: AMPICILLIN
     Indication: Antibiotic therapy
     Route: 065

REACTIONS (5)
  - Renal cortical necrosis [Not Recovered/Not Resolved]
  - Renal failure [Not Recovered/Not Resolved]
  - Shock [Recovered/Resolved]
  - Thrombotic microangiopathy [Recovered/Resolved]
  - Exposure during pregnancy [Unknown]
